FAERS Safety Report 17687869 (Version 1)
Quarter: 2020Q2

REPORT INFORMATION
  Report Type: Spontaneous
  Country: US (occurrence: US)
  Receive Date: 20200417
  Receipt Date: 20200417
  Transmission Date: 20200714
  Serious: Yes (Hospitalization)
  Sender: FDA-Public Use
  Company Number: None

PATIENT
  Age: 70 Year
  Sex: Male
  Weight: 112.49 kg

DRUGS (2)
  1. ASPIRIN (ASPIRIN 81MG TAB,EC) [Suspect]
     Active Substance: ASPIRIN
     Dates: start: 20151208
  2. APIXABAN (APIXABAN 5MG TAB) [Suspect]
     Active Substance: APIXABAN
     Dates: start: 20170509

REACTIONS (4)
  - Haemoglobin decreased [None]
  - Transfusion [None]
  - Bleeding varicose vein [None]
  - Melaena [None]

NARRATIVE: CASE EVENT DATE: 20180314
